FAERS Safety Report 18467760 (Version 1)
Quarter: 2020Q4

REPORT INFORMATION
  Report Type: Spontaneous
  Country: AT (occurrence: AT)
  Receive Date: 20201105
  Receipt Date: 20201105
  Transmission Date: 20210114
  Serious: Yes (Other)
  Sender: FDA-Public Use
  Company Number: AT-PFIZER INC-2020428702

PATIENT
  Age: 38 Year
  Sex: Female

DRUGS (6)
  1. HYDROMORPHONE HYDROCHLORIDE. [Suspect]
     Active Substance: HYDROMORPHONE HYDROCHLORIDE
     Indication: NEURALGIA
     Dosage: 16 MG, DAILY (8 MG, BID (REPORTED AS 1-0-1))
     Route: 048
  2. DRONABINOL. [Suspect]
     Active Substance: DRONABINOL
     Indication: DEPRESSION
     Dosage: UNK
  3. HYDROMORPHONE HYDROCHLORIDE. [Suspect]
     Active Substance: HYDROMORPHONE HYDROCHLORIDE
     Dosage: 4 MG, DAILY (2 MG, BID (REPORTED AS 1-0-1))
     Route: 048
  4. PREGABALIN. [Suspect]
     Active Substance: PREGABALIN
     Indication: NEURALGIA
     Dosage: 400 MG, DAILY (200 MG, BID (REPORTED AS 1-0-1))
  5. PREGABALIN. [Suspect]
     Active Substance: PREGABALIN
     Dosage: 150 MG, DAILY (75 MG, BID)
  6. DRONABINOL. [Suspect]
     Active Substance: DRONABINOL
     Indication: NEURALGIA
     Dosage: 12.5 MG, DAILY (3X5 DROPS)

REACTIONS (6)
  - Sensory disturbance [Unknown]
  - Dizziness [Recovered/Resolved]
  - Depression [Unknown]
  - Asocial behaviour [Unknown]
  - Drug ineffective [Unknown]
  - Allodynia [Unknown]
